FAERS Safety Report 18289157 (Version 2)
Quarter: 2020Q4

REPORT INFORMATION
  Report Type: Spontaneous
  Country: US (occurrence: US)
  Receive Date: 20200921
  Receipt Date: 20201014
  Transmission Date: 20210113
  Serious: No
  Sender: FDA-Public Use
  Company Number: US-PFIZER INC-2020361623

PATIENT
  Age: 77 Year
  Sex: Female
  Weight: 76.66 kg

DRUGS (1)
  1. LATANOPROST. [Suspect]
     Active Substance: LATANOPROST
     Indication: GLAUCOMA
     Dosage: 2 DROP, 1X/DAY (1 DROP EACH EYE IN THE MORNING AT 6 AM)
     Route: 047

REACTIONS (8)
  - Body height decreased [Unknown]
  - Eye oedema [Unknown]
  - Eye disorder [Unknown]
  - Intraocular pressure increased [Unknown]
  - Arthritis [Unknown]
  - Vision blurred [Unknown]
  - Visual impairment [Unknown]
  - Nervousness [Unknown]

NARRATIVE: CASE EVENT DATE: 202009
